FAERS Safety Report 17169348 (Version 1)
Quarter: 2019Q4

REPORT INFORMATION
  Report Type: Spontaneous
  Country: US (occurrence: US)
  Receive Date: 20191218
  Receipt Date: 20191218
  Transmission Date: 20200122
  Serious: No
  Sender: FDA-Public Use
  Company Number: US-BAYER-2019-223074

PATIENT
  Age: 79 Year
  Sex: Female

DRUGS (4)
  1. LEVOTHROID [Concomitant]
     Active Substance: LEVOTHYROXINE SODIUM
     Dosage: UNK
  2. PANTOPRAZOLE [Concomitant]
     Active Substance: PANTOPRAZOLE
     Dosage: UNK
  3. MIRALAX [Suspect]
     Active Substance: POLYETHYLENE GLYCOL 3350
     Indication: GASTROINTESTINAL DISORDER
     Dosage: 1 DF, ONCE
     Route: 048
     Dates: start: 20191208, end: 20191208
  4. ATACAND [Concomitant]
     Active Substance: CANDESARTAN CILEXETIL
     Dosage: UNK

REACTIONS (6)
  - Sensation of foreign body [Unknown]
  - Gait disturbance [Unknown]
  - Asthenia [None]
  - Diarrhoea [Unknown]
  - Malaise [Unknown]
  - Palpitations [Unknown]
